FAERS Safety Report 8623928-5 (Version None)
Quarter: 2012Q3

REPORT INFORMATION
  Report Type: 
  Country: None (occurrence: None)
  Receive Date: 20120827
  Receipt Date: 20120822
  Transmission Date: 20120928
  Serious: Yes (Other)
  Sender: FDA-Public Use
  Company Number: PHHY2012SE073343

PATIENT
  Sex: Female

DRUGS (1)
  1. VOLTAREN [Suspect]
     Dosage: 50 MG, UNK
     Route: 048

REACTIONS (4)
  - GASTROINTESTINAL DISORDER [None]
  - LIVER DISORDER [None]
  - RASH [None]
  - INSOMNIA [None]
